FAERS Safety Report 6923662-3 (Version None)
Quarter: 2010Q3

REPORT INFORMATION
  Report Type: 
  Country: None (occurrence: None)
  Receive Date: 20100813
  Receipt Date: 20100805
  Transmission Date: 20110219
  Serious: Yes (Life-Threatening, Hospitalization, Disabling, Other)
  Sender: FDA-Public Use
  Company Number: B0656811A

PATIENT
  Age: 65 Year
  Sex: Male

DRUGS (25)
  1. TIMENTIN [Suspect]
     Dosage: 3.2G THREE TIMES PER DAY
     Route: 042
     Dates: start: 20100425, end: 20100426
  2. FLUCLOXACILLIN [Suspect]
     Dosage: 1G PER DAY
     Route: 042
     Dates: start: 20100420, end: 20100425
  3. METRONIDAZOLE [Suspect]
     Dosage: 500MG THREE TIMES PER DAY
     Route: 042
     Dates: start: 20100420, end: 20100425
  4. PENICILLIN G [Suspect]
     Dosage: 1.2G PER DAY
     Route: 042
     Dates: start: 20100420, end: 20100425
  5. BUMETANIDE [Concomitant]
     Route: 065
  6. SPIRONOLACTONE [Concomitant]
     Route: 065
  7. FERROUS SULFATE TAB [Concomitant]
     Route: 065
  8. MORPHINE [Concomitant]
     Route: 065
  9. UNKNOWN [Concomitant]
     Route: 065
  10. ASPIRIN [Concomitant]
     Route: 065
  11. NICOTINE [Concomitant]
     Route: 065
  12. RANITIDINE [Concomitant]
     Route: 065
  13. PREDNISOLONE [Concomitant]
     Route: 065
  14. GLICLAZIDE [Concomitant]
     Route: 065
  15. RAMIPRIL [Concomitant]
     Route: 065
  16. METFORMIN HCL [Concomitant]
     Route: 065
  17. DIGOXIN [Concomitant]
     Route: 065
  18. TIOTROPIUM [Concomitant]
     Route: 065
  19. ALBUTEROL SULFATE AUTOHALER [Concomitant]
     Route: 065
  20. BETAMETHASONE [Concomitant]
     Route: 065
  21. OMEPRAZOLE [Concomitant]
  22. FUROSEMIDE [Concomitant]
  23. WARFARIN [Concomitant]
  24. TRAMADOL HYDROCHLORIDE [Concomitant]
  25. DALTEPARIN SODIUM [Concomitant]

REACTIONS (1)
  - THROMBOCYTOPENIA [None]
